FAERS Safety Report 17412222 (Version 1)
Quarter: 2020Q1

REPORT INFORMATION
  Report Type: Spontaneous
  Country: CA (occurrence: CA)
  Receive Date: 20200213
  Receipt Date: 20200213
  Transmission Date: 20200409
  Serious: Yes (Other)
  Sender: FDA-Public Use
  Company Number: CA-TEVA-2020-CA-1182633

PATIENT
  Sex: Male
  Weight: 13 kg

DRUGS (35)
  1. CALCIUM CARBONATE. [Concomitant]
     Active Substance: CALCIUM CARBONATE
  2. ONDANSETRON [Concomitant]
     Active Substance: ONDANSETRON
  3. MORPHINE [Concomitant]
     Active Substance: MORPHINE
  4. PIPERACILLIN/TAZOBACTAM [Concomitant]
     Active Substance: PIPERACILLIN SODIUM\TAZOBACTAM SODIUM
  5. TRIMETHOPRIM SULFAMETHOXAZOLE [Concomitant]
     Active Substance: SULFAMETHOXAZOLE\TRIMETHOPRIM
  6. DOCUSATE [Concomitant]
     Active Substance: DOCUSATE
  7. MERCAPTOPURINE. [Concomitant]
     Active Substance: MERCAPTOPURINE
     Indication: ACUTE LYMPHOCYTIC LEUKAEMIA
     Route: 042
  8. POTASSIUM CHLORIDE. [Concomitant]
     Active Substance: POTASSIUM CHLORIDE
  9. TICARCILLIN [Concomitant]
     Active Substance: TICARCILLIN
  10. ZOLEDRONIC ACID [Concomitant]
     Active Substance: ZOLEDRONIC ACID
  11. HEPARIN [Concomitant]
     Active Substance: HEPARIN SODIUM
  12. METOCLOPRAMIDE. [Concomitant]
     Active Substance: METOCLOPRAMIDE
  13. POLYETHYLENE GLYCOL [Concomitant]
     Active Substance: POLYETHYLENE GLYCOLS
  14. RANITIDINE. [Concomitant]
     Active Substance: RANITIDINE
  15. DOXORUBICIN HYDROCHLORIDE. [Suspect]
     Active Substance: DOXORUBICIN HYDROCHLORIDE
     Indication: PRODUCT USED FOR UNKNOWN INDICATION
     Route: 065
  16. AMOXICILLIN. [Concomitant]
     Active Substance: AMOXICILLIN
  17. DIPHENHYDRAMINE. [Concomitant]
     Active Substance: DIPHENHYDRAMINE
  18. FAMCICLOVIR. [Concomitant]
     Active Substance: FAMCICLOVIR
  19. NYSTATIN. [Concomitant]
     Active Substance: NYSTATIN
  20. TAMIFLU [Concomitant]
     Active Substance: OSELTAMIVIR PHOSPHATE
  21. CYTARABINE. [Suspect]
     Active Substance: CYTARABINE
     Indication: ACUTE LYMPHOCYTIC LEUKAEMIA
     Route: 037
  22. ACETAMINOPHEN. [Concomitant]
     Active Substance: ACETAMINOPHEN
  23. FOLIC ACID. [Concomitant]
     Active Substance: FOLIC ACID
  24. LANSOPRAZOLE. [Concomitant]
     Active Substance: LANSOPRAZOLE
  25. PENTAMIDINE ISETHIONATE. [Concomitant]
     Active Substance: PENTAMIDINE ISETHIONATE
  26. TOBRAMYCIN. [Concomitant]
     Active Substance: TOBRAMYCIN
  27. ALLOPURINOL. [Concomitant]
     Active Substance: ALLOPURINOL
  28. CEFTAZIDIME. [Concomitant]
     Active Substance: CEFTAZIDIME
     Route: 030
  29. CHOLECALCIFEROL [Concomitant]
     Active Substance: CHOLECALCIFEROL
  30. DEXAMETHASONE. [Concomitant]
     Active Substance: DEXAMETHASONE
  31. GABAPENTIN. [Concomitant]
     Active Substance: GABAPENTIN
  32. DIMENHYDRINATE. [Concomitant]
     Active Substance: DIMENHYDRINATE
  33. FENTANYL. [Concomitant]
     Active Substance: FENTANYL
  34. GRANISETRON [Concomitant]
     Active Substance: GRANISETRON
  35. HYDROCORTISONE. [Concomitant]
     Active Substance: HYDROCORTISONE

REACTIONS (1)
  - Cardiotoxicity [Unknown]
